FAERS Safety Report 19995847 (Version 1)
Quarter: 2021Q4

REPORT INFORMATION
  Report Type: Spontaneous
  Country: CN (occurrence: CN)
  Receive Date: 20211026
  Receipt Date: 20211026
  Transmission Date: 20220303
  Serious: Yes (Other)
  Sender: FDA-Public Use
  Company Number: CN-BAYER-2021A236546

PATIENT
  Sex: Male

DRUGS (3)
  1. NEXAVAR [Suspect]
     Active Substance: SORAFENIB
     Indication: Hepatic cancer
     Dosage: 2 DF, BID
     Route: 048
     Dates: start: 20210303, end: 202103
  2. NEXAVAR [Suspect]
     Active Substance: SORAFENIB
     Indication: Hepatic cancer
     Dosage: 1 DF, BID
     Route: 048
     Dates: start: 202103, end: 202103
  3. TISLELIZUMAB [Concomitant]
     Active Substance: TISLELIZUMAB
     Indication: Hepatic cancer
     Dosage: 200 MG, Q3WK
     Route: 042
     Dates: start: 20210129

REACTIONS (1)
  - Hepatic cancer [Not Recovered/Not Resolved]

NARRATIVE: CASE EVENT DATE: 20210527
